FAERS Safety Report 7346701-7 (Version None)
Quarter: 2011Q1

REPORT INFORMATION
  Report Type: 
  Country: None (occurrence: None)
  Receive Date: 20110303
  Receipt Date: 20110217
  Transmission Date: 20110831
  Serious: Yes (Hospitalization)
  Sender: FDA-Public Use
  Company Number: 027907

PATIENT

DRUGS (4)
  1. FUROSEMIDE [Suspect]
  2. WARFARIN (WARFARIN) [Suspect]
  3. ISOSORBIDE MONONITRATE [Suspect]
  4. CARBAMAZEPINE [Suspect]

REACTIONS (3)
  - PORENCEPHALY [None]
  - COMPLEX PARTIAL SEIZURES [None]
  - GRAND MAL CONVULSION [None]
